FAERS Safety Report 8674858 (Version 3)
Quarter: 2012Q4

REPORT INFORMATION
  Report Type: 
  Country: DK (occurrence: DK)
  Receive Date: 20120720
  Receipt Date: 20121030
  Transmission Date: 20130627
  Serious: Yes (Other)
  Sender: FDA-Public Use
  Company Number: DK-SANOFI-AVENTIS-2012SA049511

PATIENT
  Sex: Female
  Weight: 57 kg

DRUGS (2)
  1. MULTAQ [Suspect]
     Indication: ATRIAL FIBRILLATION
     Dosage: STYRKE: 400 mg
     Route: 048
     Dates: start: 201001, end: 201205
  2. METOPROLOL SUCCINATE [Concomitant]
     Indication: ATRIAL FIBRILLATION
     Dates: start: 201104

REACTIONS (8)
  - Ascites [Recovered/Resolved]
  - Alanine aminotransferase increased [Recovered/Resolved]
  - Gamma-glutamyltransferase increased [Recovered/Resolved]
  - Oedema [Recovered/Resolved]
  - Weight increased [Recovered/Resolved]
  - Respiratory distress [Recovered/Resolved]
  - Dyspnoea [Recovered/Resolved]
  - Cough [Recovered/Resolved]
